FAERS Safety Report 6820017-7 (Version None)
Quarter: 2010Q2

REPORT INFORMATION
  Report Type: 
  Country: None (occurrence: None)
  Receive Date: 20100630
  Receipt Date: 20100618
  Transmission Date: 20101027
  Serious: Yes (Death, Hospitalization)
  Sender: FDA-Public Use
  Company Number: OPER20100094

PATIENT
  Age: 50 Year
  Sex: Female

DRUGS (4)
  1. OPANA ER [Suspect]
     Indication: DRUG USE FOR UNKNOWN INDICATION
     Dosage: 1/2 20 MG TABLET  AT NIGHT
     Dates: start: 20100410, end: 20100410
  2. SYNTHROID (LEVOTHYROXINE SODIUM) (UNKNOWN) (LEVOTHYROXINE SODIUM) [Concomitant]
  3. LEXAPRO (ESCITALOPRAM OXALATE) (UNKNOWN) (ESCITALOPRAM OXALATE) [Concomitant]
  4. CRESTOR (ROSUVASTATIN CALCIUM) (UNKNOWN) (ROSUVASTATIN CALCIUM) [Concomitant]

REACTIONS (2)
  - ASPIRATION [None]
  - CARDIO-RESPIRATORY ARREST [None]
